FAERS Safety Report 5315702-2 (Version None)
Quarter: 2007Q2

REPORT INFORMATION
  Report Type: 
  Country: None (occurrence: None)
  Receive Date: 20070430
  Receipt Date: 20070430
  Transmission Date: 20071010
  Serious: Yes (Other)
  Sender: FDA-Public Use
  Company Number: None

PATIENT
  Age: 80 Year
  Sex: Male
  Weight: 90 kg

DRUGS (26)
  1. DAPTOMYCIN  500MG PER VIAL  CUBIST PHARMACEUTICALS [Suspect]
     Indication: NECROTISING FASCIITIS
     Dosage: 540 MG  ONES A DAY  IV DRIP
     Route: 041
     Dates: start: 20070420, end: 20070422
  2. FINASTERIDE [Concomitant]
  3. ASPIRIN [Concomitant]
  4. DIGOXIN [Concomitant]
  5. OXYCODONE HCL [Concomitant]
  6. PANTOPRAZOLE [Concomitant]
  7. LISINOPRIL [Concomitant]
  8. HYDRALAZINE HCL [Concomitant]
  9. METOPROLOL SUCCINATE [Concomitant]
  10. INSULIN [Concomitant]
  11. DOBUTAMINE [Concomitant]
  12. LASIX [Concomitant]
  13. HEPARIN [Concomitant]
  14. COSYNTROPIN [Concomitant]
  15. ALBUMIN (HUMAN) [Concomitant]
  16. COLACE [Concomitant]
  17. BISACODYL [Concomitant]
  18. SENNA [Concomitant]
  19. MORPHINE [Concomitant]
  20. VIT K [Concomitant]
  21. FLAGYL [Concomitant]
  22. CIPROFLOXACIN [Concomitant]
  23. CLINDAMYCIN [Concomitant]
  24. CEFOTAXIME [Concomitant]
  25. VANCOMYCIN [Concomitant]
  26. CEFEPIME [Concomitant]

REACTIONS (1)
  - RASH [None]
